APPROVED DRUG PRODUCT: DEXTROAMPHETAMINE SULFATE
Active Ingredient: DEXTROAMPHETAMINE SULFATE
Strength: 10MG
Dosage Form/Route: CAPSULE, EXTENDED RELEASE;ORAL
Application: A076353 | Product #002 | TE Code: AB
Applicant: SPECGX LLC
Approved: May 6, 2003 | RLD: No | RS: No | Type: RX